FAERS Safety Report 25825176 (Version 2)
Quarter: 2025Q4

REPORT INFORMATION
  Report Type: Spontaneous
  Country: CN (occurrence: CN)
  Receive Date: 20250919
  Receipt Date: 20251001
  Transmission Date: 20260118
  Serious: Yes (Other)
  Sender: NOVO NORDISK
  Company Number: CN-NOVOPROD-1521351

PATIENT
  Age: 37 Year
  Sex: Male
  Weight: 78 kg

DRUGS (3)
  1. NOVORAPID [Suspect]
     Active Substance: INSULIN ASPART
     Indication: Type 1 diabetes mellitus
     Dosage: 8-10 IU TID
  2. NOVORAPID [Suspect]
     Active Substance: INSULIN ASPART
     Dosage: 16-18 IU TID
  3. INSULIN GLARGINE [Concomitant]
     Active Substance: INSULIN GLARGINE
     Indication: Type 1 diabetes mellitus
     Dosage: UNK

REACTIONS (6)
  - Cataract operation [Not Recovered/Not Resolved]
  - Pulmonary tuberculosis [Unknown]
  - Diabetic retinopathy [Not Recovered/Not Resolved]
  - Injection site induration [Unknown]
  - Drug ineffective [Unknown]
  - Product storage error [Unknown]

NARRATIVE: CASE EVENT DATE: 20250101
